FAERS Safety Report 4411046-1 (Version None)
Quarter: 2004Q2

REPORT INFORMATION
  Report Type: 
  Country: None (occurrence: None)
  Receive Date: 20040630
  Receipt Date: 20040520
  Transmission Date: 20050107
  Serious: No
  Sender: FDA-Public Use
  Company Number: 04P-163-0259792-00

PATIENT
  Age: 46 Year
  Sex: Male
  Weight: 72.5755 kg

DRUGS (7)
  1. HUMIRA [Suspect]
     Indication: RHEUMATOID ARTHRITIS
     Dosage: 40 MG, 1 IN 2 WK, SUBCUTANEOUS
     Route: 058
     Dates: start: 20030901, end: 20040506
  2. PREDNISONE [Concomitant]
  3. HYDROXYCHLOROQUINE PHOSPHATE [Concomitant]
  4. CALCIUM [Concomitant]
  5. IBUPROFEN [Concomitant]
  6. CARISOPRODOL [Concomitant]
  7. ZOLPIDEM TARTRATE [Concomitant]

REACTIONS (2)
  - OEDEMA PERIPHERAL [None]
  - SKIN BURNING SENSATION [None]
